FAERS Safety Report 5954792-0 (Version None)
Quarter: 2008Q4

REPORT INFORMATION
  Report Type: 
  Country: None (occurrence: None)
  Receive Date: 20081117
  Receipt Date: 20081105
  Transmission Date: 20090506
  Serious: No
  Sender: FDA-Public Use
  Company Number: GB-AVENTIS-200820592GDDC

PATIENT
  Age: 32 Year
  Sex: Female

DRUGS (1)
  1. ARAVA [Suspect]
     Indication: RHEUMATOID ARTHRITIS
     Dates: start: 20071101

REACTIONS (1)
  - PATERNAL DRUGS AFFECTING FOETUS [None]
